FAERS Safety Report 5473075-9 (Version None)
Quarter: 2007Q3

REPORT INFORMATION
  Report Type: 
  Country: None (occurrence: None)
  Receive Date: 20070926
  Receipt Date: 20070918
  Transmission Date: 20080115
  Serious: Yes (Hospitalization)
  Sender: FDA-Public Use
  Company Number: B0487804A

PATIENT
  Age: 53 Year
  Sex: Male

DRUGS (2)
  1. ZOVIRAX [Suspect]
     Dosage: INTRAVENOUS INFUS
     Route: 042
  2. VALTREX [Suspect]
     Indication: HERPES ZOSTER
     Dosage: ORAL
     Route: 048

REACTIONS (9)
  - ALTERED STATE OF CONSCIOUSNESS [None]
  - BLISTER [None]
  - DIALYSIS [None]
  - DIZZINESS [None]
  - DYSARTHRIA [None]
  - DYSLALIA [None]
  - MOTOR DYSFUNCTION [None]
  - RASH [None]
  - SOMNOLENCE [None]
